FAERS Safety Report 6388959-7 (Version None)
Quarter: 2009Q4

REPORT INFORMATION
  Report Type: 
  Country: None (occurrence: None)
  Receive Date: 20091001
  Receipt Date: 20090922
  Transmission Date: 20100525
  Serious: Yes (Hospitalization, Other)
  Sender: FDA-Public Use
  Company Number: ADR28872009

PATIENT
  Age: 6 Decade
  Sex: Female

DRUGS (2)
  1. RAMIPRIL [Suspect]
  2. MYOCRISIN (10 MG) [Concomitant]

REACTIONS (6)
  - BLOOD PRESSURE DECREASED [None]
  - BURNING SENSATION [None]
  - DRUG INTERACTION [None]
  - NAUSEA [None]
  - RASH [None]
  - SYNCOPE [None]
